FAERS Safety Report 4914902-0 (Version None)
Quarter: 2006Q1

REPORT INFORMATION
  Report Type: 
  Country: None (occurrence: None)
  Receive Date: 20060217
  Receipt Date: 20060131
  Transmission Date: 20060701
  Serious: Yes (Other)
  Sender: FDA-Public Use
  Company Number: JP-BOEHRINGER INGELHEIM PHARMACEUTICALS, INC.-2006-BP-01280YA

PATIENT
  Sex: Male

DRUGS (5)
  1. HARNAL D (TAMSULOSIN HYDROCHLORIDE) [Suspect]
     Indication: BENIGN PROSTATIC HYPERPLASIA
     Route: 048
  2. EPADEL [Suspect]
     Indication: HYPERLIPIDAEMIA
     Route: 048
  3. TEGRETOL [Suspect]
     Indication: HYPOAESTHESIA
     Route: 048
  4. MERISLON [Suspect]
     Indication: DIZZINESS
     Route: 048
  5. LENDORMIN [Suspect]
     Route: 048

REACTIONS (1)
  - INTERSTITIAL LUNG DISEASE [None]
